FAERS Safety Report 7588436-1 (Version None)
Quarter: 2011Q3

REPORT INFORMATION
  Report Type: 
  Country: None (occurrence: None)
  Receive Date: 20110705
  Receipt Date: 20110622
  Transmission Date: 20111222
  Serious: Yes (Life-Threatening, Other)
  Sender: FDA-Public Use
  Company Number: US-BAYER-201034537NA

PATIENT
  Age: 26 Year
  Sex: Female
  Weight: 58.957 kg

DRUGS (6)
  1. YASMIN [Suspect]
     Indication: CONTRACEPTION
     Dosage: 1 DF, QD
     Dates: start: 20070801, end: 20080701
  2. DROSPIRENONE AND ETHINYL ESTRADIOL [Suspect]
     Indication: CONTRACEPTION
     Dosage: 1 DF, QD
     Dates: start: 20080701, end: 20091001
  3. LORATADINE [Concomitant]
     Indication: MULTIPLE ALLERGIES
     Dosage: DAILY
     Dates: start: 20090701, end: 20090901
  4. NSAID'S [Concomitant]
     Dosage: UNK UNK, PRN
  5. CIPROFLOXACIN [Concomitant]
     Dosage: UNK
     Dates: start: 20091001
  6. FLUTICASONE PROPIONATE [Concomitant]
     Indication: MULTIPLE ALLERGIES
     Dosage: DAILY
     Dates: start: 20090501, end: 20090801

REACTIONS (3)
  - GALLBLADDER DISORDER [None]
  - PAIN [None]
  - CHOLELITHIASIS [None]
